FAERS Safety Report 8699193 (Version 3)
Quarter: 2012Q4

REPORT INFORMATION
  Report Type: 
  Country: US (occurrence: US)
  Receive Date: 20120802
  Receipt Date: 20120926
  Transmission Date: 20130627
  Serious: No
  Sender: FDA-Public Use
  Company Number: US-PFIZER INC-2012186213

PATIENT
  Age: 37 Year
  Sex: Female
  Weight: 81.63 kg

DRUGS (7)
  1. EFFEXOR XR [Suspect]
     Indication: ANXIETY
     Dosage: 75 mg, 1x/day
     Route: 048
     Dates: start: 201101
  2. EFFEXOR XR [Suspect]
     Indication: DEPRESSION
     Dosage: 37.5 mg, 2x/day
     Route: 048
  3. EFFEXOR XR [Suspect]
     Dosage: 37.5 mg, 1x/day
     Route: 048
  4. EFFEXOR XR [Suspect]
     Dosage: 37.5 mg, alternate day
     Route: 048
     Dates: end: 20120802
  5. EFFEXOR [Suspect]
     Indication: ANXIETY
     Dosage: 25 mg, daily
     Route: 048
     Dates: start: 20100309
  6. EFFEXOR [Suspect]
     Indication: DEPRESSION
  7. XANAX [Concomitant]
     Indication: ANXIETY
     Dosage: UNK, 0.5 mg: 1/2 tab to 1 tab TID prn
     Dates: start: 2007

REACTIONS (4)
  - Activities of daily living impaired [Not Recovered/Not Resolved]
  - Feeling abnormal [Not Recovered/Not Resolved]
  - Somnolence [Not Recovered/Not Resolved]
  - Dizziness [Not Recovered/Not Resolved]
